FAERS Safety Report 7403509-1 (Version None)
Quarter: 2011Q2

REPORT INFORMATION
  Report Type: 
  Country: None (occurrence: None)
  Receive Date: 20110408
  Receipt Date: 20110329
  Transmission Date: 20111010
  Serious: Yes (Hospitalization, Other)
  Sender: FDA-Public Use
  Company Number: JP-MERCK-1103USA03648

PATIENT
  Age: 78 Year
  Sex: Male

DRUGS (2)
  1. DECADRON [Suspect]
     Indication: AUTOIMMUNE NEUTROPENIA
     Route: 048
  2. PREDNISOLONE [Concomitant]
     Indication: AUTOIMMUNE NEUTROPENIA
     Route: 065

REACTIONS (4)
  - INFECTION [None]
  - TRICHOSPORON INFECTION [None]
  - B-LYMPHOCYTE COUNT DECREASED [None]
  - STAPHYLOCOCCAL SEPSIS [None]
